FAERS Safety Report 18748970 (Version 1)
Quarter: 2021Q1

REPORT INFORMATION
  Report Type: Spontaneous
  Country: SI (occurrence: SI)
  Receive Date: 20210115
  Receipt Date: 20210115
  Transmission Date: 20210419
  Serious: Yes (Other)
  Sender: FDA-Public Use
  Company Number: SI-ROCHE-2748439

PATIENT
  Sex: Female

DRUGS (1)
  1. PEGASYS [Suspect]
     Active Substance: PEGINTERFERON ALFA-2A
     Indication: ESSENTIAL THROMBOCYTHAEMIA
     Dosage: 135MCG/14 DAYS
     Route: 065

REACTIONS (5)
  - Off label use [Unknown]
  - Platelet count decreased [Unknown]
  - Haemorrhage [Unknown]
  - Intentional product use issue [Unknown]
  - Paraesthesia [Unknown]
